FAERS Safety Report 9648481 (Version 1)
Quarter: 2013Q4

REPORT INFORMATION
  Report Type: Spontaneous
  Country: FR (occurrence: FR)
  Receive Date: 20131028
  Receipt Date: 20131028
  Transmission Date: 20140711
  Serious: Yes (Hospitalization)
  Sender: FDA-Public Use
  Company Number: FR-JNJFOC-20131016244

PATIENT
  Age: 75 Year
  Sex: Female

DRUGS (12)
  1. XARELTO [Suspect]
     Indication: CEREBROVASCULAR ACCIDENT PROPHYLAXIS
     Route: 048
     Dates: start: 201306, end: 201309
  2. XARELTO [Suspect]
     Indication: ATRIAL FIBRILLATION
     Route: 048
     Dates: start: 201306, end: 201309
  3. PARACETAMOL [Concomitant]
     Route: 065
  4. DIFFU K [Concomitant]
     Route: 065
  5. VENLAFAXINE [Concomitant]
     Route: 065
  6. ZYMADUO [Concomitant]
     Route: 065
  7. ESOMEPRAZOLE [Concomitant]
     Route: 065
  8. OXYBUTYNIN [Concomitant]
     Route: 065
  9. AERIUS [Concomitant]
     Route: 065
  10. FUROSEMIDE [Concomitant]
     Route: 065
  11. BISOPROLOL [Concomitant]
     Route: 065
  12. ZOLPIDEM [Concomitant]
     Route: 065

REACTIONS (2)
  - Toxic skin eruption [Recovered/Resolved]
  - Eczema [Recovered/Resolved]
